FAERS Safety Report 17065373 (Version 1)
Quarter: 2019Q4

REPORT INFORMATION
  Report Type: Spontaneous
  Country: US (occurrence: US)
  Receive Date: 20191122
  Receipt Date: 20191122
  Transmission Date: 20200122
  Serious: Yes (Hospitalization)
  Sender: FDA-Public Use
  Company Number: None

PATIENT
  Age: 42 Year
  Sex: Male
  Weight: 75.3 kg

DRUGS (1)
  1. RITUXIMAB. [Suspect]
     Active Substance: RITUXIMAB
     Indication: DIFFUSE LARGE B-CELL LYMPHOMA
     Dosage: ?          OTHER FREQUENCY:ONCE;?
     Route: 042
     Dates: start: 20191120, end: 20191120

REACTIONS (6)
  - Tachycardia [None]
  - Dyspnoea [None]
  - Pallor [None]
  - Chills [None]
  - Vital functions abnormal [None]
  - Infusion related reaction [None]

NARRATIVE: CASE EVENT DATE: 20191120
